FAERS Safety Report 21862553 (Version 1)
Quarter: 2023Q1

REPORT INFORMATION
  Report Type: Spontaneous
  Country: US (occurrence: US)
  Receive Date: 20230114
  Receipt Date: 20230114
  Transmission Date: 20230418
  Serious: Yes (Other)
  Sender: FDA-Public Use
  Company Number: US-ABBVIE-4270323

PATIENT
  Age: 64 Year
  Sex: Male

DRUGS (1)
  1. HUMIRA [Suspect]
     Active Substance: ADALIMUMAB
     Indication: Psoriasis
     Route: 058

REACTIONS (7)
  - Knee operation [Unknown]
  - Arthralgia [Unknown]
  - Hepatic cirrhosis [Unknown]
  - Renal impairment [Unknown]
  - Post procedural infection [Unknown]
  - Psoriasis [Unknown]
  - Walking aid user [Unknown]
